FAERS Safety Report 8690909 (Version 2)
Quarter: 2012Q4

REPORT INFORMATION
  Report Type: 
  Country: US (occurrence: US)
  Receive Date: 20120730
  Receipt Date: 20120828
  Transmission Date: 20130627
  Serious: No
  Sender: FDA-Public Use
  Company Number: US-009507513-1207USA009018

PATIENT

DRUGS (2)
  1. AZASITE [Suspect]
     Dosage: 2 drops, bid
  2. AZASITE [Suspect]
     Dosage: 2 drops, qd

REACTIONS (4)
  - Drug dose omission [Unknown]
  - Drug prescribing error [Unknown]
  - Product container issue [Unknown]
  - No adverse event [Unknown]
